FAERS Safety Report 4715315-7 (Version None)
Quarter: 2005Q3

REPORT INFORMATION
  Report Type: 
  Country: None (occurrence: None)
  Receive Date: 20050715
  Receipt Date: 20050706
  Transmission Date: 20060218
  Serious: Yes (Death, Other)
  Sender: FDA-Public Use
  Company Number: FR-ABBOTT-05P-056-0305829-00

PATIENT
  Age: 52 Year
  Sex: Male

DRUGS (7)
  1. RITONAVIR [Suspect]
     Indication: HIV INFECTION
     Dosage: NOT REPORTED
  2. UNSPECIFIED NEUROLEPTICS [Interacting]
     Indication: DRUG USE FOR UNKNOWN INDICATION
     Dosage: NOT REPORTED
  3. LAMIVUDINE [Interacting]
     Indication: HIV INFECTION
     Dosage: NOT REPORTED
  4. STAVUDINE [Interacting]
     Indication: HIV INFECTION
     Dosage: NOT REPORTED
  5. INDINAVIR [Concomitant]
     Indication: HIV INFECTION
     Dosage: NOT REPORTED
  6. DIDANOSINE [Concomitant]
     Indication: HIV INFECTION
     Dosage: NOT REPORTED
  7. METHADONE [Concomitant]
     Indication: DRUG ABUSER
     Dosage: NOT REPORTED

REACTIONS (3)
  - DRUG INTERACTION [None]
  - HEPATORENAL FAILURE [None]
  - RHABDOMYOLYSIS [None]
